FAERS Safety Report 6511282-4 (Version None)
Quarter: 2009Q4

REPORT INFORMATION
  Report Type: 
  Country: None (occurrence: None)
  Receive Date: 20091222
  Receipt Date: 20090529
  Transmission Date: 20100525
  Serious: Yes (Other)
  Sender: FDA-Public Use
  Company Number: US-ASTRAZENECA-2009UW07372

PATIENT
  Age: 71 Year
  Sex: Female
  Weight: 61.2 kg

DRUGS (7)
  1. CRESTOR [Suspect]
     Indication: ARTERIAL OCCLUSIVE DISEASE
     Route: 048
     Dates: start: 20090211, end: 20090212
  2. CRESTOR [Suspect]
     Indication: METABOLIC SYNDROME
     Route: 048
     Dates: start: 20090211, end: 20090212
  3. ATENOLOL [Concomitant]
     Indication: HYPERTENSION
     Route: 048
  4. ACTOS [Concomitant]
  5. PRILOSEC [Concomitant]
  6. FISH OIL [Concomitant]
     Route: 048
  7. ASPIRIN [Concomitant]
     Route: 048

REACTIONS (8)
  - APHTHOUS STOMATITIS [None]
  - DYSPHAGIA [None]
  - DYSPNOEA [None]
  - HYPERSENSITIVITY [None]
  - OROPHARYNGEAL PAIN [None]
  - RASH [None]
  - SWELLING [None]
  - SWOLLEN TONGUE [None]
